FAERS Safety Report 5481485-9 (Version None)
Quarter: 2007Q4

REPORT INFORMATION
  Report Type: 
  Country: None (occurrence: None)
  Receive Date: 20071010
  Receipt Date: 20070911
  Transmission Date: 20080405
  Serious: No
  Sender: FDA-Public Use
  Company Number: US-BAYER-200711715BWH

PATIENT
  Sex: Female

DRUGS (2)
  1. NEXAVAR [Suspect]
     Indication: METASTATIC RENAL CELL CARCINOMA
  2. AUGMENTIN '125' [Concomitant]
     Indication: RESPIRATORY TRACT CONGESTION
     Dosage: TOTAL DAILY DOSE: 100 MG
     Dates: start: 20060120, end: 20060126

REACTIONS (3)
  - DERMATITIS EXFOLIATIVE [None]
  - ERYTHEMA [None]
  - SKIN EXFOLIATION [None]
